FAERS Safety Report 5454290-7 (Version None)
Quarter: 2007Q3

REPORT INFORMATION
  Report Type: 
  Country: None (occurrence: None)
  Receive Date: 20070917
  Receipt Date: 20070911
  Transmission Date: 20080115
  Serious: Yes (Death)
  Sender: FDA-Public Use
  Company Number: PHEH2007US12310

PATIENT
  Age: 70 Year
  Sex: Female

DRUGS (2)
  1. PROVENTIL GENTLEHALER [Concomitant]
  2. FORADIL [Suspect]

REACTIONS (1)
  - DEATH [None]
